FAERS Safety Report 13298311 (Version 1)
Quarter: 2017Q1

REPORT INFORMATION
  Report Type: Spontaneous
  Country: US (occurrence: US)
  Receive Date: 20170306
  Receipt Date: 20170306
  Transmission Date: 20170428
  Serious: No
  Sender: FDA-Public Use
  Company Number: US-TEVA-729955ACC

PATIENT
  Age: 42 Year
  Sex: Female
  Weight: 185 kg

DRUGS (1)
  1. BUPRENORPHINE W/NALOXONE [Suspect]
     Active Substance: BUPRENORPHINE HYDROCHLORIDE\NALOXONE HYDROCHLORIDE
     Indication: PAIN
     Dosage: FORM STRENGTH:8/2 MG
     Route: 060

REACTIONS (2)
  - Salivary hypersecretion [Unknown]
  - Product quality issue [Unknown]

NARRATIVE: CASE EVENT DATE: 20170107
